FAERS Safety Report 8999777 (Version 1)
Quarter: 2013Q1

REPORT INFORMATION
  Report Type: Spontaneous
  Country: DE (occurrence: DE)
  Receive Date: 20130102
  Receipt Date: 20130102
  Transmission Date: 20140127
  Serious: Yes (Other)
  Sender: FDA-Public Use
  Company Number: DE-ASTRAZENECA-2012SE95448

PATIENT
  Age: 24471 Day
  Sex: Female

DRUGS (2)
  1. ARIMIDEX [Suspect]
     Indication: BREAST CANCER FEMALE
     Route: 048
  2. TAMOXIFEN [Suspect]
     Indication: BREAST CANCER FEMALE
     Route: 048

REACTIONS (7)
  - Dysgeusia [Unknown]
  - Oral lichen planus [Unknown]
  - Quality of life decreased [Unknown]
  - Vaginal infection [Unknown]
  - Weight decreased [Unknown]
  - Glaucoma [Unknown]
  - Arthropathy [Unknown]
